FAERS Safety Report 7361062-5 (Version None)
Quarter: 2011Q1

REPORT INFORMATION
  Report Type: 
  Country: None (occurrence: None)
  Receive Date: 20110318
  Receipt Date: 20110307
  Transmission Date: 20110831
  Serious: Yes (Other)
  Sender: FDA-Public Use
  Company Number: US-ROCHE-764244

PATIENT
  Age: 21 Year
  Sex: Female

DRUGS (11)
  1. VORICONAZOLE [Interacting]
     Dosage: AFTER 17 DAYS OF INTRAVENOUS THERAPY, ORAL THERAPY WAS STARTED
     Route: 050
  2. IDARUBICIN HCL [Concomitant]
     Dosage: INDUCTION THERAPY
  3. ALL-TRANS-RETINOIC ACID [Suspect]
     Dosage: INDUCTION THERAPY
     Route: 048
  4. ALL-TRANS-RETINOIC ACID [Interacting]
     Dosage: REINITIATED 6 DAYS AFTER DISCHARGE
     Route: 048
  5. VORICONAZOLE [Interacting]
     Dosage: AFTER DAY 1: STRENGTH: 4MG/KG
     Route: 050
  6. IDARUBICIN HCL [Concomitant]
     Dosage: CONSOLIDATION THERAPY
  7. CYTARABINE [Concomitant]
     Dosage: INDUCTION THERAPY
  8. PANTOPRAZOLE [Concomitant]
     Dosage: FREQUENCY: PER DAY
  9. VORICONAZOLE [Interacting]
     Dosage: ON DAY 1, STRENGTH: 6MG/KG
     Route: 050
  10. FLUCONAZOLE [Concomitant]
     Dosage: FREQUENCY: PER DAY
  11. ALL-TRANS-RETINOIC ACID [Interacting]
     Dosage: CONSOLIDATION THERAPY
     Route: 048

REACTIONS (4)
  - BENIGN INTRACRANIAL HYPERTENSION [None]
  - STAPHYLOCOCCAL INFECTION [None]
  - DRUG INTERACTION [None]
  - PANCYTOPENIA [None]
